FAERS Safety Report 9162458 (Version 1)
Quarter: 2013Q1

REPORT INFORMATION
  Report Type: Spontaneous
  Country: DK (occurrence: None)
  Receive Date: 20130225
  Receipt Date: 20130225
  Transmission Date: 20140127
  Serious: Yes (Other)
  Sender: FDA-Public Use
  Company Number: 2013MA001252

PATIENT
  Age: 11 Year
  Sex: Female

DRUGS (4)
  1. ACYCLOVIR TABLETS, 800 MG (PUREPAC) (ACICLOVIR) [Suspect]
     Indication: HERPES SIMPLEX ENCEPHALITIS
     Route: 042
     Dates: start: 20130201, end: 20130203
  2. CEFTRIAXONE [Concomitant]
  3. PHENYTOIN [Concomitant]
  4. PREV MEDS [Concomitant]

REACTIONS (1)
  - Glomerular filtration rate decreased [None]
